FAERS Safety Report 8069767-8 (Version None)
Quarter: 2011Q4

REPORT INFORMATION
  Report Type: 
  Country: None (occurrence: None)
  Receive Date: 20111221
  Receipt Date: 20110829
  Transmission Date: 20120403
  Serious: Yes (Other)
  Sender: FDA-Public Use
  Company Number: PHEH2011US02815

PATIENT
  Age: 72 Year
  Sex: Female
  Weight: 71.7 kg

DRUGS (1)
  1. EXJADE [Suspect]
     Indication: CHRONIC MYELOID LEUKAEMIA
     Dosage: 1500 MG, DAILY, ORAL
     Route: 048
     Dates: start: 20110802, end: 20110828

REACTIONS (2)
  - RASH [None]
  - DIARRHOEA [None]
